FAERS Safety Report 6409795-9 (Version None)
Quarter: 2009Q4

REPORT INFORMATION
  Report Type: 
  Country: None (occurrence: None)
  Receive Date: 20091022
  Receipt Date: 20091013
  Transmission Date: 20100525
  Serious: Yes (Hospitalization)
  Sender: FDA-Public Use
  Company Number: FR-JNJFOC-20091005451

PATIENT
  Sex: Female

DRUGS (8)
  1. DURAGESIC-100 [Suspect]
     Indication: PAIN
     Route: 062
  2. NEXIUM [Suspect]
     Indication: DRUG USE FOR UNKNOWN INDICATION
  3. KARDEGIC [Concomitant]
  4. CACIT D3 [Concomitant]
  5. FORLAX [Concomitant]
  6. LOXEN [Concomitant]
  7. ARIXTRA [Concomitant]
  8. CIBACALCIN [Concomitant]

REACTIONS (2)
  - ABNORMAL BEHAVIOUR [None]
  - CONFUSIONAL STATE [None]
